FAERS Safety Report 6749316-4 (Version None)
Quarter: 2010Q2

REPORT INFORMATION
  Report Type: 
  Country: None (occurrence: None)
  Receive Date: 20100601
  Receipt Date: 20100520
  Transmission Date: 20101027
  Serious: Yes (Hospitalization)
  Sender: FDA-Public Use
  Company Number: US-ROCHE-608617

PATIENT
  Sex: Female
  Weight: 69.5 kg

DRUGS (5)
  1. BEVACIZUMAB [Suspect]
     Route: 065
  2. GDC-0449 [Suspect]
     Dosage: 150 MG, QD
     Route: 048
     Dates: start: 20081003
  3. FLUOROURACIL [Suspect]
     Indication: DRUG USE FOR UNKNOWN INDICATION
     Route: 065
  4. OXALIPLATIN [Suspect]
     Indication: DRUG USE FOR UNKNOWN INDICATION
     Dosage: UNK
     Route: 065
     Dates: end: 20090114
  5. LEUCOVORIN CALCIUM [Suspect]
     Indication: DRUG USE FOR UNKNOWN INDICATION
     Route: 065

REACTIONS (1)
  - LUNG INFILTRATION [None]
